FAERS Safety Report 4319779-2 (Version None)
Quarter: 2004Q1

REPORT INFORMATION
  Report Type: 
  Country: None (occurrence: None)
  Receive Date: 20040319
  Receipt Date: 20040317
  Transmission Date: 20041129
  Serious: Yes (Other)
  Sender: FDA-Public Use
  Company Number: FR-GLAXOSMITHKLINE-B0327034A

PATIENT
  Age: 41 Year
  Sex: Female

DRUGS (1)
  1. ZYBAN [Suspect]
     Dosage: 150MG UNKNOWN
     Route: 048

REACTIONS (4)
  - ALANINE AMINOTRANSFERASE INCREASED [None]
  - DERMATITIS BULLOUS [None]
  - PORPHYRIA [None]
  - SERUM FERRITIN INCREASED [None]
